FAERS Safety Report 23737807 (Version 1)
Quarter: 2024Q2

REPORT INFORMATION
  Report Type: Spontaneous
  Country: EE (occurrence: EE)
  Receive Date: 20240412
  Receipt Date: 20240412
  Transmission Date: 20240716
  Serious: Yes (Hospitalization, Other)
  Sender: FDA-Public Use
  Company Number: EE-FreseniusKabi-FK202405823

PATIENT
  Age: 9 Year

DRUGS (3)
  1. PROPOFOL [Suspect]
     Active Substance: PROPOFOL
     Indication: Sedation
     Dosage: DOSAGE: 20 ML/H (= 8 MG/KG/H)?FORM OF ADMIN: CONTINUOUS INFUSION
  2. PROPOFOL [Suspect]
     Active Substance: PROPOFOL
     Dosage: REDUCED ON 23-DEC-2019 TO 12 ML/H (=  4.8  MG/KG/H)?FORM OF ADMIN: CONTINUOUS INFUSION
  3. DEXMEDETOMIDINE [Concomitant]
     Active Substance: DEXMEDETOMIDINE
     Indication: Sedation

REACTIONS (2)
  - Propofol infusion syndrome [Unknown]
  - Product administered to patient of inappropriate age [Unknown]
